FAERS Safety Report 5819657-3 (Version None)
Quarter: 2008Q3

REPORT INFORMATION
  Report Type: 
  Country: None (occurrence: None)
  Receive Date: 20080723
  Receipt Date: 20080711
  Transmission Date: 20090109
  Serious: Yes (Other)
  Sender: FDA-Public Use
  Company Number: US-PFIZER INC-2008014456

PATIENT
  Sex: Male

DRUGS (6)
  1. ALPRAZOLAM [Suspect]
     Indication: ANXIETY
     Route: 048
     Dates: start: 20070108, end: 20080406
  2. MONTELUKAST SODIUM [Concomitant]
  3. NEXIUM [Concomitant]
  4. HYDROCHLOROTHIAZIDE [Concomitant]
  5. PLAVIX [Concomitant]
  6. PERCOCET [Concomitant]

REACTIONS (6)
  - ABDOMINAL DISCOMFORT [None]
  - ANXIETY [None]
  - DRUG INEFFECTIVE [None]
  - KYPHOSIS [None]
  - PAIN [None]
  - PARAESTHESIA [None]
